FAERS Safety Report 26161305 (Version 1)
Quarter: 2025Q4

REPORT INFORMATION
  Report Type: Spontaneous
  Country: US (occurrence: US)
  Receive Date: 20251216
  Receipt Date: 20251216
  Transmission Date: 20260118
  Serious: No
  Sender: BAXTER
  Company Number: US-BAXTER-2025BAX025513

PATIENT
  Sex: Female

DRUGS (2)
  1. SODIUM CHLORIDE [Suspect]
     Active Substance: SODIUM CHLORIDE
     Indication: Medication dilution
     Dosage: FULL 10ML DOSE DILUTED IN 1 LITER OF 0.9% NORMAL SALINE SOLUTION
     Route: 042
     Dates: start: 20251129
  2. VITAMINS [Suspect]
     Active Substance: VITAMINS
     Indication: Immune disorder prophylaxis
     Dosage: 10ML 2VL DOSE (FULL 10ML DOSE  DILUTED IN 1 LITER OF 0.9% NORMAL SALINE SOLUTION)
     Route: 042
     Dates: start: 20251129

REACTIONS (1)
  - Dyspnoea [Recovered/Resolved]

NARRATIVE: CASE EVENT DATE: 20251129
